FAERS Safety Report 7981177-8 (Version None)
Quarter: 2011Q4

REPORT INFORMATION
  Report Type: 
  Country: None (occurrence: None)
  Receive Date: 20111215
  Receipt Date: 20111205
  Transmission Date: 20120403
  Serious: Yes (Other)
  Sender: FDA-Public Use
  Company Number: US-BAYER-201035217NA

PATIENT
  Age: 23 Year
  Sex: Female
  Weight: 81.633 kg

DRUGS (6)
  1. ALBUTEROL [Concomitant]
  2. YASMIN [Suspect]
     Indication: CONTRACEPTION
     Dosage: UNK
     Route: 048
     Dates: start: 20060101, end: 20090301
  3. VICODIN [Concomitant]
     Dosage: AS NECESSARY
     Route: 048
  4. PROAIR HFA [Concomitant]
     Dosage: AS NECESSARY
  5. FISH OIL [Concomitant]
     Dosage: 1 CAPSULE THREE TIMES A DAY
     Route: 048
  6. VITAMIN E [Concomitant]
     Dosage: 1 CAPSULE ONCE DAILY
     Route: 048

REACTIONS (5)
  - DYSPEPSIA [None]
  - CHOLECYSTITIS CHRONIC [None]
  - PROCEDURAL PAIN [None]
  - GALLBLADDER DISORDER [None]
  - ABDOMINAL PAIN UPPER [None]
